FAERS Safety Report 8746642 (Version 2)
Quarter: 2013Q1

REPORT INFORMATION
  Report Type: Report from Study
  Country: DE (occurrence: DE)
  Receive Date: 20120827
  Receipt Date: 20130307
  Transmission Date: 20140127
  Serious: Yes (Hospitalization, Other)
  Sender: FDA-Public Use
  Company Number: DE-ASTELLAS-2012US007206

PATIENT
  Age: 70 Year
  Sex: Female
  Weight: 87 kg

DRUGS (1)
  1. ERLOTINIB TABLET [Suspect]
     Indication: METASTATIC BRONCHIAL CARCINOMA
     Dosage: 150 MG, UNKNOWN/D
     Route: 048
     Dates: start: 20120215

REACTIONS (10)
  - General physical health deterioration [Recovering/Resolving]
  - C-reactive protein increased [Unknown]
  - Blood lactate dehydrogenase increased [Unknown]
  - Lipase increased [Unknown]
  - Dehydration [Recovering/Resolving]
  - Pyrexia [Recovering/Resolving]
  - Rash [Recovering/Resolving]
  - Infection [Recovering/Resolving]
  - Blood bilirubin increased [Unknown]
  - Aspartate aminotransferase increased [Unknown]
